FAERS Safety Report 14582068 (Version 1)
Quarter: 2018Q1

REPORT INFORMATION
  Report Type: Spontaneous
  Country: GB (occurrence: GB)
  Receive Date: 20180228
  Receipt Date: 20180228
  Transmission Date: 20180509
  Serious: Yes (Other)
  Sender: FDA-Public Use
  Company Number: GB-TEVA-2018-GB-862053

PATIENT
  Age: 67 Year
  Sex: Male
  Weight: 98.87 kg

DRUGS (12)
  1. LOSARTAN POTASSIUM. [Interacting]
     Active Substance: LOSARTAN POTASSIUM
  2. ZAMADOL SR [Suspect]
     Active Substance: TRAMADOL HYDROCHLORIDE
  3. CARDURA XL [Suspect]
     Active Substance: DOXAZOSIN MESYLATE
     Route: 048
     Dates: start: 2017, end: 2017
  4. LANSOPRAZOLE. [Suspect]
     Active Substance: LANSOPRAZOLE
  5. MEBEVERINE [Interacting]
     Active Substance: MEBEVERINE
  6. FERROUS FUMARATE [Suspect]
     Active Substance: FERROUS FUMARATE
  7. CARDURA XL [Suspect]
     Active Substance: DOXAZOSIN MESYLATE
     Indication: HYPERTENSION
     Route: 048
     Dates: start: 20171222, end: 20171225
  8. PARACETAMOL [Interacting]
     Active Substance: ACETAMINOPHEN
     Route: 065
  9. AMITRIPTYLINE [Interacting]
     Active Substance: AMITRIPTYLINE
  10. AMLODIPINE [Interacting]
     Active Substance: AMLODIPINE BESYLATE
  11. FOLIC ACID. [Interacting]
     Active Substance: FOLIC ACID
  12. PRAVASTATIN SODIUM. [Suspect]
     Active Substance: PRAVASTATIN SODIUM

REACTIONS (6)
  - Abdominal distension [Recovering/Resolving]
  - Myalgia [Recovering/Resolving]
  - Asthenia [Recovering/Resolving]
  - Abdominal pain upper [Recovering/Resolving]
  - Drug interaction [Unknown]
  - Constipation [Recovering/Resolving]

NARRATIVE: CASE EVENT DATE: 20171224
